FAERS Safety Report 13496977 (Version 1)
Quarter: 2017Q2

REPORT INFORMATION
  Report Type: Spontaneous
  Country: BG (occurrence: BG)
  Receive Date: 20170428
  Receipt Date: 20170428
  Transmission Date: 20170830
  Serious: Yes (Hospitalization)
  Sender: FDA-Public Use
  Company Number: BG-BAYER-2017-079731

PATIENT
  Sex: Female

DRUGS (1)
  1. ASPIRIN PROTECT 100 MG [Suspect]
     Active Substance: ASPIRIN
     Dosage: UNK UNK, OM
     Route: 048

REACTIONS (3)
  - Malaise [Unknown]
  - Erosive oesophagitis [None]
  - Haematemesis [None]

NARRATIVE: CASE EVENT DATE: 201704
